FAERS Safety Report 4401416-X (Version None)
Quarter: 2004Q3

REPORT INFORMATION
  Report Type: 
  Country: None (occurrence: None)
  Receive Date: 20040907
  Receipt Date: 20040423
  Transmission Date: 20050211
  Serious: No
  Sender: FDA-Public Use
  Company Number: US-BRISTOL-MYERS SQUIBB COMPANY-12570594

PATIENT
  Age: 81 Year
  Sex: Female
  Weight: 42 kg

DRUGS (6)
  1. COUMADIN [Suspect]
     Indication: TRANSIENT ISCHAEMIC ATTACK
     Dosage: DOSE VALUE: 2 MG FOR 2 DAYS, ALTERNATING WITH 3 MG FOR 1 DAY.
     Route: 048
  2. NORVASC [Concomitant]
  3. ALTACE [Concomitant]
  4. SYNTHROID [Concomitant]
  5. AXID [Concomitant]
  6. VICODIN [Concomitant]

REACTIONS (2)
  - INTERNATIONAL NORMALISED RATIO ABNORMAL [None]
  - PROTHROMBIN TIME SHORTENED [None]
